FAERS Safety Report 24085663 (Version 1)
Quarter: 2024Q3

REPORT INFORMATION
  Report Type: Spontaneous
  Country: DE (occurrence: None)
  Receive Date: 20240712
  Receipt Date: 20240712
  Transmission Date: 20241017
  Serious: Yes (Other)
  Sender: ASTRAZENECA
  Company Number: 2024A159526

PATIENT
  Age: 29 Year
  Sex: Female
  Weight: 73.8 kg

DRUGS (5)
  1. QUETIAPINE [Suspect]
     Active Substance: QUETIAPINE
     Indication: Sleep disorder
  2. BISOPROLOL [Suspect]
     Active Substance: BISOPROLOL\BISOPROLOL FUMARATE
     Indication: Sleep disorder
     Dates: start: 20230301, end: 20231115
  3. TRIMIPRAMINE [Suspect]
     Active Substance: TRIMIPRAMINE
     Indication: Sleep disorder
     Dosage: IN THE COURSE AND STOPPED AT GW 10
  4. TRIMIPRAMINE [Suspect]
     Active Substance: TRIMIPRAMINE
     Indication: Depression
     Dosage: IN THE COURSE AND STOPPED AT GW 10
  5. FEMIBION [Concomitant]
     Indication: Prophylaxis of neural tube defect

REACTIONS (4)
  - Autoimmune thyroiditis [Unknown]
  - Exposure during pregnancy [Unknown]
  - Placental insufficiency [Unknown]
  - Off label use [Unknown]
